FAERS Safety Report 4861254-0 (Version None)
Quarter: 2005Q4

REPORT INFORMATION
  Report Type: 
  Country: None (occurrence: None)
  Receive Date: 20051220
  Receipt Date: 20041112
  Transmission Date: 20060501
  Serious: Yes (Other)
  Sender: FDA-Public Use
  Company Number: US-MERCK-0411USA02294

PATIENT
  Age: 35 Year
  Sex: Male

DRUGS (3)
  1. VIOXX [Suspect]
     Route: 048
  2. MECLIZINE [Concomitant]
     Route: 065
  3. RISPERDAL [Concomitant]
     Route: 065

REACTIONS (3)
  - CEREBROVASCULAR ACCIDENT [None]
  - DIZZINESS [None]
  - HEART RATE INCREASED [None]
